FAERS Safety Report 23530395 (Version 1)
Quarter: 2024Q1

REPORT INFORMATION
  Report Type: Spontaneous
  Country: CN (occurrence: CN)
  Receive Date: 20240216
  Receipt Date: 20240216
  Transmission Date: 20240410
  Serious: Yes (Hospitalization)
  Sender: FDA-Public Use
  Company Number: CN-SHANGHAI JUNSHI BIOSCIENCES CO., LTD.-CN2024009311

PATIENT

DRUGS (3)
  1. TORIPALIMAB [Suspect]
     Active Substance: TORIPALIMAB
     Indication: Laryngeal cancer
     Dosage: 240 MG
     Route: 041
     Dates: start: 20240124, end: 20240124
  2. CISPLATIN [Suspect]
     Active Substance: CISPLATIN
     Indication: Laryngeal cancer
     Dosage: 30 MG, QD, D1-D3
     Route: 041
     Dates: start: 20240126, end: 20240128
  3. PACLITAXEL [Concomitant]
     Active Substance: PACLITAXEL
     Indication: Laryngeal cancer
     Dosage: 0.3 G
     Dates: start: 20240125

REACTIONS (4)
  - White blood cell count decreased [Recovering/Resolving]
  - Neutrophil count decreased [Recovering/Resolving]
  - Platelet count decreased [Recovering/Resolving]
  - Off label use [Unknown]

NARRATIVE: CASE EVENT DATE: 20240130
